FAERS Safety Report 6791318-6 (Version None)
Quarter: 2010Q2

REPORT INFORMATION
  Report Type: 
  Country: None (occurrence: None)
  Receive Date: 20100624
  Receipt Date: 20100616
  Transmission Date: 20101027
  Serious: Yes (Death, Other)
  Sender: FDA-Public Use
  Company Number: JP-ROCHE-643250

PATIENT
  Sex: Male
  Weight: 47 kg

DRUGS (27)
  1. AVASTIN [Suspect]
     Indication: RECTAL CANCER RECURRENT
     Route: 041
     Dates: start: 20090428, end: 20090428
  2. AVASTIN [Suspect]
     Route: 041
     Dates: start: 20090518, end: 20090518
  3. AVASTIN [Suspect]
     Route: 041
     Dates: start: 20090608, end: 20090608
  4. URIEF [Concomitant]
     Route: 048
     Dates: start: 20080510, end: 20090619
  5. UBRETID [Concomitant]
     Route: 048
     Dates: start: 20080510, end: 20090619
  6. TAKEPRON [Concomitant]
     Route: 048
     Dates: start: 20081210, end: 20090619
  7. LOXONIN [Concomitant]
     Route: 048
     Dates: start: 20090422, end: 20090619
  8. FLUOROURACIL [Concomitant]
     Dosage: ROUTE: INTRAVENOUS BOLUS
     Route: 042
     Dates: start: 20090428, end: 20090428
  9. FLUOROURACIL [Concomitant]
     Dosage: ROUTE: INTRAVENOUS DRIP
     Route: 042
     Dates: start: 20090428, end: 20090430
  10. FLUOROURACIL [Concomitant]
     Dosage: ROUTE: INTRAVENOUS BOLUS
     Route: 042
     Dates: start: 20090518, end: 20090518
  11. FLUOROURACIL [Concomitant]
     Dosage: ROUTE: INTRAVENOUS DRIP
     Route: 042
     Dates: start: 20090518, end: 20090520
  12. FLUOROURACIL [Concomitant]
     Dosage: ROUTE: INTRAVENOUS BOLUS
     Route: 042
     Dates: start: 20090608, end: 20090608
  13. FLUOROURACIL [Concomitant]
     Dosage: ROUTE: INTRAVENOUS DRIP
     Route: 042
     Dates: start: 20090608, end: 20090610
  14. CAMPTOSAR [Concomitant]
     Dosage: DRUG NAME REPORTED AS IRINOTECAN HYDROCHLORIDE.
     Route: 041
     Dates: start: 20090428, end: 20090428
  15. CAMPTOSAR [Concomitant]
     Route: 041
     Dates: start: 20090518, end: 20090518
  16. CAMPTOSAR [Concomitant]
     Route: 041
     Dates: start: 20090608, end: 20090608
  17. LEUCOVORIN CALCIUM [Concomitant]
     Route: 041
     Dates: start: 20090428, end: 20090428
  18. LEUCOVORIN CALCIUM [Concomitant]
     Route: 041
     Dates: start: 20090518, end: 20090518
  19. LEUCOVORIN CALCIUM [Concomitant]
     Route: 041
     Dates: start: 20090608, end: 20090608
  20. DECADRON-PHOSPHAT [Concomitant]
     Route: 041
     Dates: start: 20090428, end: 20090608
  21. GRANISETRON HYDROCHLORIDE [Concomitant]
     Route: 041
     Dates: start: 20090428, end: 20090608
  22. HANGE-SHASHIN-TO [Concomitant]
     Route: 048
     Dates: start: 20090428, end: 20090619
  23. NAUZELIN [Concomitant]
     Route: 048
     Dates: start: 20090428, end: 20090613
  24. PRIMPERAN TAB [Concomitant]
     Route: 048
     Dates: start: 20090428, end: 20090613
  25. MS CONTIN [Concomitant]
     Route: 048
     Dates: start: 20090428, end: 20090619
  26. DECADRON [Concomitant]
     Route: 048
     Dates: start: 20090429, end: 20090610
  27. LOPEMIN [Concomitant]
     Dosage: NOTE: TAKEN AS NEEDED
     Route: 048
     Dates: start: 20090429, end: 20090613

REACTIONS (6)
  - DISEASE PROGRESSION [None]
  - ILEAL PERFORATION [None]
  - IMPAIRED HEALING [None]
  - PERITONITIS [None]
  - SHOCK [None]
  - WOUND DEHISCENCE [None]
